FAERS Safety Report 4699831-2 (Version None)
Quarter: 2005Q2

REPORT INFORMATION
  Report Type: 
  Country: None (occurrence: None)
  Receive Date: 20050623
  Receipt Date: 20050610
  Transmission Date: 20051028
  Serious: Yes (Hospitalization)
  Sender: FDA-Public Use
  Company Number: HQWYE737616MAY05

PATIENT
  Age: 24 Year
  Sex: Male
  Weight: 109 kg

DRUGS (5)
  1. RAPAMUNE [Suspect]
     Indication: PROPHYLAXIS AGAINST TRANSPLANT REJECTION
     Dosage: 5 MG 1X PER 1 DAY, ORAL
     Route: 048
     Dates: start: 20050507, end: 20050526
  2. ZENAPAX [Concomitant]
  3. PREDNISONE [Concomitant]
  4. CELLCEPT [Concomitant]
  5. FENTANYL [Concomitant]

REACTIONS (10)
  - BACK PAIN [None]
  - COMPLICATIONS OF TRANSPLANTED KIDNEY [None]
  - DYSPNOEA [None]
  - HAEMATOCRIT DECREASED [None]
  - HAEMODIALYSIS [None]
  - HYPERTENSION [None]
  - PYREXIA [None]
  - RENAL TUBULAR NECROSIS [None]
  - URINARY TRACT INFECTION [None]
  - URINE OUTPUT DECREASED [None]
